FAERS Safety Report 19892102 (Version 2)
Quarter: 2021Q4

REPORT INFORMATION
  Report Type: Report from Study
  Country: CN (occurrence: CN)
  Receive Date: 20210928
  Receipt Date: 20211019
  Transmission Date: 20220303
  Serious: Yes (Hospitalization)
  Sender: FDA-Public Use
  Company Number: CN-KARYOPHARM-2021KPT001227

PATIENT
  Age: 56 Year
  Sex: Female

DRUGS (10)
  1. SELINEXOR [Suspect]
     Active Substance: SELINEXOR
     Indication: Diffuse large B-cell lymphoma
     Dosage: 60 MG, 2X/WEEK ON FRIDAY AND SUNDAY
     Route: 048
     Dates: start: 20210507, end: 20210905
  2. OLANZAPINE [Concomitant]
     Active Substance: OLANZAPINE
     Indication: Prophylaxis of nausea and vomiting
     Dosage: 5 MG, QD
     Route: 048
     Dates: start: 20210813, end: 20210905
  3. ILAPRAZOLE [Concomitant]
     Active Substance: ILAPRAZOLE
     Indication: Cancer pain
     Dosage: 10 MG, QD
     Route: 048
     Dates: start: 20210514
  4. HYDROTALCITE [Concomitant]
     Active Substance: HYDROTALCITE
     Indication: Cancer pain
     Dosage: 0.5 G, TID
     Route: 048
     Dates: start: 20210514
  5. DROTAVERINE [Concomitant]
     Active Substance: DROTAVERINE
     Indication: Cancer pain
     Dosage: 40 MG, TID
     Route: 048
     Dates: start: 20210514
  6. MEGESTROL [Concomitant]
     Active Substance: MEGESTROL
     Indication: Decreased appetite
     Dosage: 160 MG, QD
     Route: 048
     Dates: start: 20210514, end: 20210905
  7. METHYLCOBALAMIN [Concomitant]
     Active Substance: METHYLCOBALAMIN
     Indication: Nervous system disorder prophylaxis
     Dosage: 0.5 MG, TID
     Route: 048
     Dates: start: 20210813, end: 20210920
  8. CITICOLINE [Concomitant]
     Active Substance: CITICOLINE
     Indication: Nervous system disorder prophylaxis
     Dosage: 0.2 G, TID
     Route: 048
     Dates: start: 20210813, end: 20210908
  9. POTASSIUM CHLORIDE [Concomitant]
     Active Substance: POTASSIUM CHLORIDE
     Indication: Hypokalaemia
     Dosage: 1 G, BID
     Route: 048
     Dates: start: 20210826, end: 20210908
  10. MEDROXYPROGESTERONE [Concomitant]
     Active Substance: MEDROXYPROGESTERONE
     Indication: Decreased appetite
     Dosage: 500 MG, QD
     Route: 048
     Dates: start: 20210826, end: 20210905

REACTIONS (1)
  - Anaemia [Recovered/Resolved]

NARRATIVE: CASE EVENT DATE: 20210910
